FAERS Safety Report 7731404-7 (Version None)
Quarter: 2011Q3

REPORT INFORMATION
  Report Type: 
  Country: None (occurrence: None)
  Receive Date: 20110906
  Receipt Date: 20110527
  Transmission Date: 20111222
  Serious: No
  Sender: FDA-Public Use
  Company Number: US-AMGEN-USASP2011027825

PATIENT
  Age: 75 Year
  Sex: Female

DRUGS (5)
  1. RESPIRATORY STIMULANTS [Concomitant]
  2. MULTIVITAMIN                       /00097801/ [Concomitant]
  3. THYROID THERAPY [Concomitant]
  4. PROLIA [Suspect]
     Indication: OSTEOPOROSIS POSTMENOPAUSAL
     Dates: start: 20110401
  5. ANTIHYPERTENSIVES [Concomitant]

REACTIONS (2)
  - BONE PAIN [None]
  - MUSCLE SPASMS [None]
